FAERS Safety Report 15766298 (Version 6)
Quarter: 2019Q1

REPORT INFORMATION
  Report Type: Spontaneous
  Country: US (occurrence: US)
  Receive Date: 20181227
  Receipt Date: 20190219
  Transmission Date: 20190417
  Serious: No
  Sender: FDA-Public Use
  Company Number: US-PFIZER INC-2018438568

PATIENT
  Age: 53 Year
  Sex: Female

DRUGS (1)
  1. LYRICA [Suspect]
     Active Substance: PREGABALIN
     Indication: LIMB INJURY
     Dosage: 300 MG, 2X/DAY
     Route: 048
     Dates: start: 20180720

REACTIONS (5)
  - Nasopharyngitis [Unknown]
  - Pain [Unknown]
  - Malaise [Unknown]
  - Product use in unapproved indication [Unknown]
  - Influenza like illness [Unknown]

NARRATIVE: CASE EVENT DATE: 20180720
